FAERS Safety Report 9225053 (Version 1)
Quarter: 2013Q2

REPORT INFORMATION
  Report Type: Spontaneous
  Country: JP (occurrence: None)
  Receive Date: 20130409
  Receipt Date: 20130409
  Transmission Date: 20140414
  Serious: Yes (Hospitalization, Other)
  Sender: FDA-Public Use
  Company Number: 2013P1004456

PATIENT
  Age: 84 Year
  Sex: Female
  Weight: 43.6 kg

DRUGS (4)
  1. RIFAMPIN [Suspect]
     Indication: DISSEMINATED TUBERCULOSIS
     Dates: start: 201202
  2. ISONIAZID [Concomitant]
  3. ETHAMBUTOL [Concomitant]
  4. PREDNISOLONE [Concomitant]

REACTIONS (1)
  - Pneumonitis [None]
